FAERS Safety Report 12371452 (Version 1)
Quarter: 2016Q2

REPORT INFORMATION
  Report Type: Report from Study
  Country: US (occurrence: US)
  Receive Date: 20160516
  Receipt Date: 20160516
  Transmission Date: 20160815
  Serious: Yes (Life-Threatening, Hospitalization, Other)
  Sender: FDA-Public Use
  Company Number: US-CELGENEUS-USA-2016031080

PATIENT
  Age: 55 Year
  Sex: Male
  Weight: 61.2 kg

DRUGS (7)
  1. REVLIMID [Suspect]
     Active Substance: LENALIDOMIDE
     Indication: PLASMA CELL MYELOMA
     Route: 048
     Dates: start: 20131121, end: 20131121
  2. REVLIMID [Suspect]
     Active Substance: LENALIDOMIDE
     Route: 048
     Dates: end: 20151204
  3. REVLIMID [Suspect]
     Active Substance: LENALIDOMIDE
     Dosage: 80 MICROGRAM
     Route: 048
     Dates: start: 20151028, end: 20151127
  4. QVAR [Concomitant]
     Active Substance: BECLOMETHASONE DIPROPIONATE
     Indication: ASTHMA PROPHYLAXIS
     Dosage: 2 PUFFS
     Route: 055
  5. ASPIRIN. [Concomitant]
     Active Substance: ASPIRIN
     Indication: PROPHYLAXIS
     Route: 065
  6. ASPIRIN. [Concomitant]
     Active Substance: ASPIRIN
     Dosage: 90 MICROGRAM
     Route: 065
     Dates: start: 20131121, end: 20151128
  7. PROAIR HFA [Concomitant]
     Active Substance: ALBUTEROL SULFATE
     Indication: ASTHMA
     Dosage: 2 PUFFS
     Route: 055

REACTIONS (2)
  - Acute myocardial infarction [Recovered/Resolved with Sequelae]
  - Cardiac failure congestive [Recovering/Resolving]

NARRATIVE: CASE EVENT DATE: 20151128
